FAERS Safety Report 6129683-5 (Version None)
Quarter: 2009Q1

REPORT INFORMATION
  Report Type: 
  Country: None (occurrence: None)
  Receive Date: 20090320
  Receipt Date: 20090306
  Transmission Date: 20090719
  Serious: Yes (Death)
  Sender: FDA-Public Use
  Company Number: 2009179794

PATIENT
  Age: 80 Year
  Sex: Male

DRUGS (13)
  1. FRAGMIN [Suspect]
     Indication: ATRIAL FIBRILLATION
     Dosage: 7500 IU, 2X/DAY, SUBCUTANEOUS
     Route: 058
     Dates: start: 20081209, end: 20081222
  2. ARTHROTEC [Suspect]
     Dosage: ORAL
     Route: 048
     Dates: start: 20081224, end: 20081226
  3. WARFARIN SODIUM [Suspect]
     Indication: ATRIAL FIBRILLATION
     Dosage: AS PER SCHEDULE, ORAL
     Route: 048
     Dates: start: 20081210, end: 20081223
  4. CORDARONE [Suspect]
     Indication: ATRIAL FIBRILLATION
     Dosage: 300 MG IV BOLUS FIRST DAY. THEN 1050 MG/24 HOURS. TABLETS IN GRADUALLY REDUCED DOSES LAST 11 DAYS.
     Route: 040
     Dates: start: 20081211, end: 20081226
  5. ALLOPURINOL [Concomitant]
  6. BUMETANIDE [Concomitant]
  7. METOPROLOL SUCCINATE [Concomitant]
  8. MONOKET OD (ISOSORBIDE MONONITRATE) [Concomitant]
  9. AMARYL [Concomitant]
  10. POTASSIUM CHLORIDE [Concomitant]
  11. PREDNISOLONE [Concomitant]
  12. APOCILLI (PHENOXYMETHYLPENICILLIN POTASSIUM) [Concomitant]
  13. METFORMIN HCL [Concomitant]

REACTIONS (5)
  - FALL [None]
  - HAEMORRHAGE SUBCUTANEOUS [None]
  - HAEMORRHAGIC ANAEMIA [None]
  - MUSCLE HAEMORRHAGE [None]
  - MYOCARDIAL INFARCTION [None]
